FAERS Safety Report 23837483 (Version 1)
Quarter: 2024Q2

REPORT INFORMATION
  Report Type: Spontaneous
  Country: US (occurrence: None)
  Receive Date: 20240508
  Receipt Date: 20240508
  Transmission Date: 20240716
  Serious: No
  Sender: FDA-Public Use
  Company Number: None

PATIENT
  Age: 56 Year
  Sex: Female
  Weight: 64.35 kg

DRUGS (7)
  1. METFORMIN [Suspect]
     Active Substance: METFORMIN HYDROCHLORIDE
     Indication: Glycosylated haemoglobin increased
     Dosage: OTHER QUANTITY : 1 TABLET(S);?FREQUENCY : DAILY;?
     Route: 048
     Dates: start: 20240429, end: 20240507
  2. -methylfolate, Bvitamin complex [Concomitant]
  3. GLUTATHIONE [Concomitant]
     Active Substance: GLUTATHIONE
  4. sserrapeptase, [Concomitant]
  5. SAM-e, [Concomitant]
  6. lack seed oil [Concomitant]
  7. HERBALS\TURMERIC [Concomitant]
     Active Substance: HERBALS\TURMERIC

REACTIONS (6)
  - Abdominal discomfort [None]
  - Feeling abnormal [None]
  - Muscle spasms [None]
  - Musculoskeletal stiffness [None]
  - Therapy interrupted [None]
  - Head discomfort [None]

NARRATIVE: CASE EVENT DATE: 20240505
